FAERS Safety Report 24239114 (Version 2)
Quarter: 2024Q4

REPORT INFORMATION
  Report Type: Spontaneous
  Country: US (occurrence: US)
  Receive Date: 20240822
  Receipt Date: 20241125
  Transmission Date: 20250115
  Serious: No
  Sender: AVADEL CNS PHARMACEUTICALS, LLC
  Company Number: US-AVADEL CNS PHARMACEUTICALS, LLC-2024AVA01271

PATIENT
  Sex: Female

DRUGS (2)
  1. LUMRYZ [Suspect]
     Active Substance: SODIUM OXYBATE
     Indication: Narcolepsy
     Dosage: 9 G, ONCE NIGHTLY
     Route: 048
     Dates: start: 20240530, end: 20240813
  2. ^A LOT^ OF UNSPECIFIED MEDICATIONS [Concomitant]

REACTIONS (6)
  - Terminal insomnia [Not Recovered/Not Resolved]
  - Abnormal behaviour [Unknown]
  - Poor quality sleep [Unknown]
  - Hunger [Unknown]
  - Depression [Recovering/Resolving]
  - Somnolence [Not Recovered/Not Resolved]

NARRATIVE: CASE EVENT DATE: 20240101
